FAERS Safety Report 14573575 (Version 1)
Quarter: 2018Q1

REPORT INFORMATION
  Report Type: Report from Study
  Country: CA (occurrence: CA)
  Receive Date: 20180226
  Receipt Date: 20180226
  Transmission Date: 20180509
  Serious: Yes (Other)
  Sender: FDA-Public Use
  Company Number: CA-TOLMAR, INC.-2018CA002069

PATIENT

DRUGS (1)
  1. ELIGARD [Suspect]
     Active Substance: LEUPROLIDE ACETATE
     Indication: PROSTATE CANCER
     Dosage: 22.5 MG, EVERY 3 MONTHS
     Route: 058
     Dates: start: 20171127

REACTIONS (3)
  - Metastases to lymph nodes [Unknown]
  - Prostatic specific antigen abnormal [Unknown]
  - Urinary tract infection [Recovered/Resolved]

NARRATIVE: CASE EVENT DATE: 201801
